FAERS Safety Report 6421432-6 (Version None)
Quarter: 2009Q4

REPORT INFORMATION
  Report Type: 
  Country: None (occurrence: None)
  Receive Date: 20091030
  Receipt Date: 20090929
  Transmission Date: 20100525
  Serious: No
  Sender: FDA-Public Use
  Company Number: US-BAYER-200934865NA

PATIENT
  Sex: Male

DRUGS (2)
  1. AVELOX [Suspect]
     Indication: DRUG USE FOR UNKNOWN INDICATION
     Route: 042
     Dates: start: 20090901
  2. AVELOX [Suspect]
     Dates: start: 20090701

REACTIONS (4)
  - DRUG HYPERSENSITIVITY [None]
  - DYSGEUSIA [None]
  - EAR PRURITUS [None]
  - PRURITUS [None]
